FAERS Safety Report 5810414-0 (Version None)
Quarter: 2008Q3

REPORT INFORMATION
  Report Type: 
  Country: None (occurrence: None)
  Receive Date: 20080715
  Receipt Date: 20080702
  Transmission Date: 20090109
  Serious: Yes (Hospitalization)
  Sender: FDA-Public Use
  Company Number: DE-ROCHE-574342

PATIENT
  Sex: Male
  Weight: 62.5 kg

DRUGS (2)
  1. PEG-INTERFERON A-2A (RO 25-8310) [Suspect]
     Route: 058
     Dates: start: 20080410
  2. RIBAVIRIN [Suspect]
     Route: 065

REACTIONS (2)
  - CHOLANGITIS [None]
  - CHOLELITHIASIS [None]
